FAERS Safety Report 14067919 (Version 1)
Quarter: 2017Q4

REPORT INFORMATION
  Report Type: Report from Study
  Country: None (occurrence: BR)
  Receive Date: 20171010
  Receipt Date: 20171010
  Transmission Date: 20180321
  Serious: Yes (Other)
  Sender: FDA-Public Use
  Company Number: BR-ABBVIE-17K-020-2121467-00

PATIENT
  Age: 62 Year
  Sex: Female
  Weight: 83 kg

DRUGS (3)
  1. HUMIRA [Suspect]
     Active Substance: ADALIMUMAB
     Indication: RHEUMATOID ARTHRITIS
     Route: 058
     Dates: start: 20100105
  2. METHOTREXATE. [Concomitant]
     Active Substance: METHOTREXATE
     Indication: ADJUVANT THERAPY
  3. FOLIC ACID. [Concomitant]
     Active Substance: FOLIC ACID
     Indication: ANAEMIA PROPHYLAXIS

REACTIONS (3)
  - Hypertension [Recovering/Resolving]
  - Mitral valve prolapse [Unknown]
  - Cardiac valve disease [Unknown]

NARRATIVE: CASE EVENT DATE: 201704
